FAERS Safety Report 4837254-3 (Version None)
Quarter: 2005Q4

REPORT INFORMATION
  Report Type: 
  Country: None (occurrence: None)
  Receive Date: 20051122
  Receipt Date: 20051111
  Transmission Date: 20060501
  Serious: Yes (Hospitalization, Other)
  Sender: FDA-Public Use
  Company Number: US-2005-021522

PATIENT
  Age: 60 Year
  Sex: Female

DRUGS (7)
  1. ULTRAVIST (PHARMACY BULK) [Suspect]
     Indication: ARTERIOGRAM CORONARY
     Dosage: 150 MG, 1 DOSE, INTRAVENOUS
     Route: 042
     Dates: start: 20051018, end: 20051018
  2. BENAZEPRIL HCL [Concomitant]
  3. LIPITOR                                /NET/ [Concomitant]
  4. ATORVASTATIN CALCIUM [Concomitant]
  5. NEXIUM [Concomitant]
  6. XALATAN [Concomitant]
  7. TIMOLOL MALEATE [Concomitant]

REACTIONS (10)
  - ANAPHYLACTIC SHOCK [None]
  - BLOOD GLUCOSE INCREASED [None]
  - ELECTROCARDIOGRAM QT PROLONGED [None]
  - HYPOALBUMINAEMIA [None]
  - HYPOCALCAEMIA [None]
  - HYPOKALAEMIA [None]
  - HYPOPROTEINAEMIA [None]
  - HYPOXIA [None]
  - SINUS ARRHYTHMIA [None]
  - WHITE BLOOD CELL COUNT INCREASED [None]
